FAERS Safety Report 4320718-9 (Version None)
Quarter: 2004Q1

REPORT INFORMATION
  Report Type: 
  Country: None (occurrence: None)
  Receive Date: 20040318
  Receipt Date: 20040223
  Transmission Date: 20041129
  Serious: Yes (Life-Threatening)
  Sender: FDA-Public Use
  Company Number: 2004-BP-01679NB

PATIENT
  Age: 62 Year
  Sex: Male

DRUGS (3)
  1. MICARDIS [Suspect]
     Indication: HYPERTENSION
     Dosage: 40 MG PO
     Route: 048
     Dates: start: 20030904, end: 20040218
  2. NORVASC [Suspect]
     Indication: HYPERTENSION
     Dosage: 5 MG, PO
     Route: 048
     Dates: start: 20021001, end: 20040224
  3. HYPERURICAEMIA [Concomitant]

REACTIONS (1)
  - VENTRICULAR EXTRASYSTOLES [None]
